FAERS Safety Report 10165432 (Version 1)
Quarter: 2014Q2

REPORT INFORMATION
  Report Type: Spontaneous
  Country: US (occurrence: US)
  Receive Date: 20140510
  Receipt Date: 20140510
  Transmission Date: 20141212
  Serious: No
  Sender: FDA-Public Use
  Company Number: US-BRISTOL-MYERS SQUIBB COMPANY-19836063

PATIENT
  Age: 60 Year
  Sex: Female
  Weight: 104.31 kg

DRUGS (3)
  1. BYDUREON  2MG SUSPENSION [Suspect]
     Indication: TYPE 2 DIABETES MELLITUS
  2. METFORMIN [Concomitant]
     Dosage: 1DF: 500 UNITS NOS
  3. LANTUS [Concomitant]
     Dosage: 1DF: 36 UNITS

REACTIONS (2)
  - Injection site haemorrhage [Unknown]
  - Injection site pain [Unknown]
